FAERS Safety Report 4928350-0 (Version None)
Quarter: 2006Q1

REPORT INFORMATION
  Report Type: 
  Country: None (occurrence: None)
  Receive Date: 20060223
  Receipt Date: 20060202
  Transmission Date: 20060701
  Serious: Yes (Hospitalization)
  Sender: FDA-Public Use
  Company Number: CA_050908726

PATIENT
  Age: 84 Year
  Sex: Female

DRUGS (9)
  1. FORTEO [Suspect]
     Indication: OSTEOPOROSIS
     Dosage: 20 UG, DAILY (1/D), SUBCUTANEOUS
     Route: 058
     Dates: start: 20050823
  2. ARICEPT [Concomitant]
  3. SELEGELINE HYDROCHLORIDE [Concomitant]
  4. PANTALOC (PANTALOC) [Concomitant]
  5. NORVASC [Concomitant]
  6. CALCIUM (CALCIUM) [Concomitant]
  7. VITAMIN D [Concomitant]
  8. ZOLOFT [Concomitant]
  9. FORTEO PEN, 250MCG/ML (3ML) (FORTEO PEN 250MCG/ML) (3ML)) PEN, DISPOSA [Concomitant]

REACTIONS (6)
  - BACK PAIN [None]
  - CONFUSIONAL STATE [None]
  - FALL [None]
  - NEPHROPATHY TOXIC [None]
  - PAIN [None]
  - URINARY INCONTINENCE [None]
